FAERS Safety Report 9144783 (Version 1)
Quarter: 2013Q1

REPORT INFORMATION
  Report Type: Spontaneous
  Country: CN (occurrence: CN)
  Receive Date: 20130306
  Receipt Date: 20130306
  Transmission Date: 20140127
  Serious: Yes (Other)
  Sender: FDA-Public Use
  Company Number: PHHY2010CN48878

PATIENT
  Sex: Female

DRUGS (1)
  1. MIACALCIC [Suspect]
     Indication: OSTEOPOROSIS
     Dosage: 50 IU, UNK
     Dates: start: 201004, end: 201004

REACTIONS (3)
  - Convulsion [Recovering/Resolving]
  - Hypocalcaemia [Recovered/Resolved]
  - Muscle twitching [Recovering/Resolving]
